FAERS Safety Report 22202613 (Version 1)
Quarter: 2023Q2

REPORT INFORMATION
  Report Type: Report from Study
  Country: IT (occurrence: IT)
  Receive Date: 20230412
  Receipt Date: 20230412
  Transmission Date: 20230722
  Serious: Yes (Other)
  Sender: FDA-Public Use
  Company Number: IT-MYLANLABS-2023M1038439

PATIENT
  Age: 69 Year
  Sex: Female

DRUGS (4)
  1. CISPLATIN [Suspect]
     Active Substance: CISPLATIN
     Indication: Triple negative breast cancer
     Dosage: 75 MILLIGRAM/SQ. METER, Q3W
     Route: 042
  2. CISPLATIN [Suspect]
     Active Substance: CISPLATIN
     Dosage: UNK (DOSE REDUCED)
     Route: 042
  3. GEDATOLISIB [Suspect]
     Active Substance: GEDATOLISIB
     Indication: Triple negative breast cancer
     Dosage: 310 MILLIGRAM, QW
     Route: 042
  4. GEDATOLISIB [Suspect]
     Active Substance: GEDATOLISIB
     Dosage: UNK (DOSE REDUCED)
     Route: 042

REACTIONS (2)
  - Stomatitis [Recovered/Resolved]
  - Nausea [Recovered/Resolved]
